FAERS Safety Report 8836470 (Version 2)
Quarter: 2012Q4

REPORT INFORMATION
  Report Type: 
  Country: US (occurrence: US)
  Receive Date: 20121011
  Receipt Date: 20121121
  Transmission Date: 20130627
  Serious: Yes (Hospitalization, Other)
  Sender: FDA-Public Use
  Company Number: US-ASTRAZENECA-2011SE40812

PATIENT
  Age: 58 Year
  Sex: Female
  Weight: 86.2 kg

DRUGS (7)
  1. SEROQUEL XR [Suspect]
     Indication: MAJOR DEPRESSION
     Route: 048
     Dates: start: 20121030
  2. SEROQUEL XR [Suspect]
     Indication: ANXIETY DISORDER
     Route: 048
     Dates: start: 20121030
  3. PRAVACHOL [Concomitant]
     Indication: BLOOD CHOLESTEROL ABNORMAL
     Dosage: ONCE
     Route: 048
     Dates: start: 2011
  4. XANAX [Concomitant]
     Indication: INSOMNIA
     Route: 048
     Dates: start: 2005
  5. CELEXA [Concomitant]
     Indication: DEPRESSION
     Route: 048
     Dates: start: 2011
  6. TRIBENZOR [Concomitant]
     Indication: HYPERTENSION
     Dosage: 40 MG 5 MG 12.5 MG DAILY
     Route: 048
     Dates: start: 2011
  7. PROPRANOLOL [Concomitant]
     Indication: HYPERTENSION
     Dosage: BID
     Route: 048
     Dates: start: 2010

REACTIONS (8)
  - Joint dislocation [Unknown]
  - Abdominal strangulated hernia [Unknown]
  - Rotator cuff syndrome [Unknown]
  - Confusional state [Unknown]
  - Malaise [Unknown]
  - Malaise [Unknown]
  - Mental impairment [Unknown]
  - Drug dose omission [Unknown]
